FAERS Safety Report 9230215 (Version 1)
Quarter: 2013Q2

REPORT INFORMATION
  Report Type: Spontaneous
  Country: US (occurrence: None)
  Receive Date: 20130411
  Receipt Date: 20130411
  Transmission Date: 20140414
  Serious: Yes (Hospitalization)
  Sender: FDA-Public Use
  Company Number: 2013HINLIT0075

PATIENT
  Age: 20 Year
  Sex: Male

DRUGS (8)
  1. LEVETIRACETAM (LEVETIRACETAM) UNKNOWN [Suspect]
  2. LIPID EMULSION [Suspect]
     Dosage: 20% OF 1.5 ML/KG/MIN FOR 30 MIN
     Route: 040
  3. DOXEPIN [Suspect]
     Indication: PRODUCT USED FOR UNKNOWN INDICATION
     Dosage: MORE THEN 3MG, UNKNOWN
  4. CITALOPRAM [Suspect]
     Indication: PRODUCT USED FOR UNKNOWN INDICATION
  5. ADRENALINE (EPINEPHRINE) [Concomitant]
  6. LORAZEPAM (LORAZEPAM) [Concomitant]
  7. FOSPHENYTOIN [Concomitant]
  8. SODIUM BICARBONATE [Concomitant]

REACTIONS (7)
  - Grand mal convulsion [None]
  - Cardiac arrest [None]
  - Pancreatitis [None]
  - Unresponsive to stimuli [None]
  - Overdose [None]
  - Blood triglycerides increased [None]
  - Blood bilirubin increased [None]
